FAERS Safety Report 8862977 (Version 1)
Quarter: 2012Q4

REPORT INFORMATION
  Report Type: 
  Country: US (occurrence: US)
  Receive Date: 20121026
  Receipt Date: 20121026
  Transmission Date: 20130627
  Serious: No
  Sender: FDA-Public Use
  Company Number: US-ALLERGAN-1206801US

PATIENT
  Age: 75 Year
  Sex: Female

DRUGS (3)
  1. ALPHAGAN P [Suspect]
     Indication: GLAUCOMA
     Dosage: 2 Gtt, qd
     Route: 047
     Dates: start: 201110
  2. NATURAL TYROID MEDICINE [Concomitant]
     Indication: HYPOTHYROIDISM
     Dosage: UNK Gtt, qd
     Route: 048
  3. NATURAL HORMONE REPLACEMENT PATCH [Concomitant]
     Indication: HRT
     Dosage: UNK

REACTIONS (9)
  - Incorrect dose administered [Unknown]
  - Eye irritation [Recovered/Resolved]
  - Eye pain [Recovered/Resolved]
  - Eye swelling [Recovered/Resolved]
  - Erythema [Recovered/Resolved]
  - Contusion [Recovered/Resolved]
  - Eye pain [Recovered/Resolved]
  - Eye pruritus [Recovered/Resolved]
  - Discomfort [Recovered/Resolved]
